FAERS Safety Report 12321835 (Version 1)
Quarter: 2016Q2

REPORT INFORMATION
  Report Type: Spontaneous
  Country: US (occurrence: None)
  Receive Date: 20160429
  Receipt Date: 20160429
  Transmission Date: 20160815
  Serious: Yes (Other)
  Sender: FDA-Public Use
  Company Number: None

PATIENT
  Age: 47 Year
  Sex: Female
  Weight: 64 kg

DRUGS (7)
  1. DIPRIVAN [Suspect]
     Active Substance: PROPOFOL
     Indication: INDUCTION OF ANAESTHESIA
     Dosage: 10 MG/ML TITRATED TO EFFECT IV
     Route: 042
     Dates: start: 20160330
  2. NEXIUM [Concomitant]
     Active Substance: ESOMEPRAZOLE MAGNESIUM
  3. VALIUM [Concomitant]
     Active Substance: DIAZEPAM
  4. NAPROXEN. [Concomitant]
     Active Substance: NAPROXEN
  5. ACEBUTOLOL [Concomitant]
     Active Substance: ACEBUTOLOL
  6. SINGULAIR [Concomitant]
     Active Substance: MONTELUKAST SODIUM
  7. VITAMIN B12 [Concomitant]
     Active Substance: CYANOCOBALAMIN

REACTIONS (1)
  - Muscle tightness [None]

NARRATIVE: CASE EVENT DATE: 20160330
